FAERS Safety Report 8248817-X (Version None)
Quarter: 2012Q2

REPORT INFORMATION
  Report Type: 
  Country: None (occurrence: None)
  Receive Date: 20120401
  Receipt Date: 20120323
  Transmission Date: 20120825
  Serious: Yes (Other)
  Sender: FDA-Public Use
  Company Number: PHHY2012ES019534

PATIENT
  Age: 43 Year
  Sex: Female

DRUGS (3)
  1. ACETAMINOPHEN [Concomitant]
     Indication: PROCEDURAL PAIN
     Dosage: 75 MG, UNK
  2. AMITRIPTYLINE HCL [Suspect]
     Indication: PROCEDURAL PAIN
     Dosage: 75 MG, UNK
     Route: 048
  3. FENTANYL [Concomitant]
     Indication: PROCEDURAL PAIN
     Dosage: 75 UG, Q72H
     Route: 062

REACTIONS (2)
  - PLATELET DISORDER [None]
  - HAEMORRHAGE [None]
